FAERS Safety Report 4447639-5 (Version None)
Quarter: 2004Q3

REPORT INFORMATION
  Report Type: 
  Country: None (occurrence: None)
  Receive Date: 20040913
  Receipt Date: 20040902
  Transmission Date: 20050211
  Serious: Yes (Hospitalization)
  Sender: FDA-Public Use
  Company Number: NSADSS2003024184

PATIENT
  Sex: Female
  Weight: 53.16 kg

DRUGS (8)
  1. PROCRIT [Suspect]
     Dates: start: 20030501, end: 20030508
  2. CELEXA [Suspect]
     Indication: DRUG USE FOR UNKNOWN INDICATION
     Route: 065
  3. RISPERDAL [Suspect]
     Indication: DRUG USE FOR UNKNOWN INDICATION
     Route: 065
  4. ALCOHOL [Suspect]
     Indication: DRUG USE FOR UNKNOWN INDICATION
  5. COMBIVIR [Concomitant]
  6. COMBIVIR [Concomitant]
  7. KALETRA [Concomitant]
  8. KALETRA [Concomitant]

REACTIONS (2)
  - ALCOHOL INTERACTION [None]
  - GRAND MAL CONVULSION [None]
